FAERS Safety Report 23034970 (Version 6)
Quarter: 2023Q4

REPORT INFORMATION
  Report Type: Report from Study
  Country: US (occurrence: US)
  Receive Date: 20231005
  Receipt Date: 20231220
  Transmission Date: 20240109
  Serious: No
  Sender: FDA-Public Use
  Company Number: US-002147023-NVSC2023US213824

PATIENT
  Sex: Female

DRUGS (1)
  1. KESIMPTA [Suspect]
     Active Substance: OFATUMUMAB
     Indication: Relapsing multiple sclerosis
     Dosage: UNK
     Route: 065
     Dates: start: 20230818

REACTIONS (5)
  - Gait disturbance [Unknown]
  - Aphonia [Unknown]
  - Mobility decreased [Unknown]
  - Hypoaesthesia [Unknown]
  - Nasal congestion [Unknown]
